FAERS Safety Report 8439694-2 (Version None)
Quarter: 2012Q2

REPORT INFORMATION
  Report Type: 
  Country: None (occurrence: None)
  Receive Date: 20120615
  Receipt Date: 20120607
  Transmission Date: 20120825
  Serious: No
  Sender: FDA-Public Use
  Company Number: US-PFIZER INC-2012139896

PATIENT
  Sex: Male

DRUGS (1)
  1. INLYTA [Suspect]
     Indication: LUNG NEOPLASM MALIGNANT
     Dosage: 5 MG, 2X/DAY (ONE TABLET TWICE A DAY)
     Route: 048
     Dates: start: 20120503

REACTIONS (4)
  - SOMNOLENCE [None]
  - HEAD INJURY [None]
  - DYSARTHRIA [None]
  - FALL [None]
